FAERS Safety Report 9059304 (Version 1)
Quarter: 2013Q1

REPORT INFORMATION
  Report Type: Spontaneous
  Country: US (occurrence: US)
  Receive Date: 20130211
  Receipt Date: 20130211
  Transmission Date: 20140127
  Serious: Yes (Other)
  Sender: FDA-Public Use
  Company Number: US-ASTRAZENECA-2013SE08111

PATIENT
  Age: 59 Year
  Sex: Female
  Weight: 69.4 kg

DRUGS (6)
  1. NEXIUM [Suspect]
     Indication: GASTROOESOPHAGEAL REFLUX DISEASE
     Route: 048
     Dates: start: 2003, end: 2011
  2. PRILOSEC [Suspect]
     Indication: GASTROOESOPHAGEAL REFLUX DISEASE
     Route: 048
  3. COUMADIN [Concomitant]
     Indication: THROMBOSIS PROPHYLAXIS
     Dates: start: 2004
  4. TYLENOL [Concomitant]
     Indication: PAIN
     Dosage: AS REQUIRED
  5. LIPITOR [Concomitant]
     Indication: BLOOD CHOLESTEROL INCREASED
     Dates: start: 201210
  6. ALLEGRA [Concomitant]
     Indication: MULTIPLE ALLERGIES
     Dates: start: 2010

REACTIONS (6)
  - Venous thrombosis limb [Recovered/Resolved]
  - Skin discolouration [Unknown]
  - Body height decreased [Unknown]
  - Blood cholesterol increased [Unknown]
  - Dyspepsia [Unknown]
  - Vomiting [Unknown]
